FAERS Safety Report 10163241 (Version 1)
Quarter: 2014Q2

REPORT INFORMATION
  Report Type: Spontaneous
  Country: US (occurrence: US)
  Receive Date: 20140509
  Receipt Date: 20140509
  Transmission Date: 20141212
  Serious: No
  Sender: FDA-Public Use
  Company Number: US-PFIZER INC-2014125977

PATIENT
  Sex: Female

DRUGS (3)
  1. ADVIL [Suspect]
     Indication: ARTHRALGIA
     Dosage: UNK
     Route: 048
  2. METOPROLOL [Concomitant]
     Indication: HYPERTENSION
     Dosage: UNK, ONCE A DAY
  3. POTASSIUM [Concomitant]
     Dosage: UNK, AS NEEDED

REACTIONS (1)
  - Drug effect delayed [Unknown]
